FAERS Safety Report 9822246 (Version 3)
Quarter: 2015Q2

REPORT INFORMATION
  Report Type: Spontaneous
  Country: US (occurrence: US)
  Receive Date: 20140116
  Receipt Date: 20150626
  Transmission Date: 20150821
  Serious: Yes (Other)
  Sender: FDA-Public Use
  Company Number: US-BAYER-2014-007460

PATIENT
  Age: 30 Year
  Sex: Female
  Weight: 81.63 kg

DRUGS (3)
  1. MIRENA [Suspect]
     Active Substance: LEVONORGESTREL
     Indication: CONTRACEPTION
     Dosage: 20 MCG/24HR, CONT
     Route: 015
     Dates: start: 20020627
  2. MOTRIN [Concomitant]
     Active Substance: IBUPROFEN
  3. PARAGARD T 380A [Suspect]
     Active Substance: COPPER
     Dosage: UNK
     Dates: start: 20020627

REACTIONS (7)
  - Endometriosis [None]
  - Abortion spontaneous [None]
  - Ovarian cyst [None]
  - Pelvic inflammatory disease [None]
  - Pain [None]
  - Device dislocation [None]
  - Uterine scar [None]

NARRATIVE: CASE EVENT DATE: 20020627
